FAERS Safety Report 4278095-8 (Version None)
Quarter: 2004Q1

REPORT INFORMATION
  Report Type: 
  Country: None (occurrence: None)
  Receive Date: 20040122
  Receipt Date: 20040122
  Transmission Date: 20041129
  Serious: No
  Sender: FDA-Public Use
  Company Number: None

PATIENT
  Age: 84 Year
  Sex: Female
  Weight: 54.4316 kg

DRUGS (1)
  1. ALPHAGAN [Suspect]
     Indication: GLAUCOMA
     Dosage: TWICE DAY MORNING NIGHT

REACTIONS (1)
  - SOMNOLENCE [None]
